FAERS Safety Report 4916211-2 (Version None)
Quarter: 2006Q1

REPORT INFORMATION
  Report Type: 
  Country: None (occurrence: None)
  Receive Date: 20060217
  Receipt Date: 20051207
  Transmission Date: 20060701
  Serious: Yes (Hospitalization, Other)
  Sender: FDA-Public Use
  Company Number: US-MERCK-0512USA01320

PATIENT
  Age: 28 Year
  Sex: Male

DRUGS (1)
  1. VIOXX [Suspect]
     Route: 048

REACTIONS (6)
  - ADJUSTMENT DISORDER [None]
  - ASTHMA [None]
  - CHEST PAIN [None]
  - DERMATITIS [None]
  - MYOCARDIAL INFARCTION [None]
  - VIRAL PHARYNGITIS [None]
